FAERS Safety Report 6434891-X (Version None)
Quarter: 2009Q4

REPORT INFORMATION
  Report Type: 
  Country: None (occurrence: None)
  Receive Date: 20091110
  Receipt Date: 20091102
  Transmission Date: 20100525
  Serious: Yes (Life-Threatening, Hospitalization)
  Sender: FDA-Public Use
  Company Number: DE-GENENTECH-293630

PATIENT
  Sex: Female
  Weight: 81 kg

DRUGS (1)
  1. ACTIVASE [Suspect]
     Indication: CEREBRAL ISCHAEMIA
     Dosage: 73 MG, UNK
     Route: 042
     Dates: start: 20091102

REACTIONS (5)
  - BRONCHOSPASM [None]
  - DERMATITIS ALLERGIC [None]
  - HYPERSENSITIVITY [None]
  - OXYGEN SATURATION DECREASED [None]
  - URTICARIA [None]
